FAERS Safety Report 4646388-8 (Version None)
Quarter: 2005Q2

REPORT INFORMATION
  Report Type: 
  Country: None (occurrence: None)
  Receive Date: 20050427
  Receipt Date: 20030415
  Transmission Date: 20051028
  Serious: No
  Sender: FDA-Public Use
  Company Number: US-GLAXOSMITHKLINE-A0405024A

PATIENT
  Age: 48 Year
  Sex: Female

DRUGS (1)
  1. SEREVENT [Suspect]
     Indication: EMPHYSEMA
     Dosage: 2PUFF TWICE PER DAY
     Route: 055
     Dates: start: 20030402, end: 20030405

REACTIONS (3)
  - DYSPNOEA [None]
  - HEART RATE INCREASED [None]
  - NAUSEA [None]
